FAERS Safety Report 10601502 (Version 1)
Quarter: 2014Q4

REPORT INFORMATION
  Report Type: Spontaneous
  Country: US (occurrence: None)
  Receive Date: 20141120
  Receipt Date: 20141120
  Transmission Date: 20150529
  Serious: Yes (Hospitalization, Other)
  Sender: FDA-Public Use
  Company Number: QSC-2014-0837

PATIENT
  Age: 74 Year
  Sex: Male

DRUGS (10)
  1. ISOSORBIDE (ISOSORBIDE) [Concomitant]
     Active Substance: ISOSORBIDE
  2. DOCUSATE (DOCUSATE) [Concomitant]
     Active Substance: DOCUSATE
  3. NEPHROCAPS?/07192601/ (ASCORBIC ACID, BIOTIN, COLECALCIFEROL, CYANOCOBALAMIN, FOLIC ACID NICOTINIC ACID, PANTOTHENIC ACID, PYRIDOXINE HYDROCHLORIDE, RIBOFLAVIN, THIAMINE) ?? [Concomitant]
  4. H.P. ACTHAR [Suspect]
     Active Substance: CORTICOTROPIN
     Indication: FOCAL SEGMENTAL GLOMERULOSCLEROSIS
     Dosage: 80 UNITS
     Route: 030
     Dates: start: 20141013, end: 20141025
  5. TOPROL (METOPROLOL SUCCINATE) [Concomitant]
  6. NIFEDIPINE (NIFEDIPINE) [Concomitant]
  7. MULTIVITAMINUM (VITAMINS NOS) [Concomitant]
  8. PROTONIX [Concomitant]
     Active Substance: PANTOPRAZOLE SODIUM
  9. DOXAZOSIN [Concomitant]
     Active Substance: DOXAZOSIN\DOXAZOSIN MESYLATE
  10. LOSARTAN (LOSARTAN) [Concomitant]
     Active Substance: LOSARTAN

REACTIONS (8)
  - Hyperkalaemia [None]
  - Anaemia [None]
  - Blood creatinine increased [None]
  - Device related infection [None]
  - Pyrexia [None]
  - Ventricular tachycardia [None]
  - Metabolic acidosis [None]
  - Blood pressure increased [None]

NARRATIVE: CASE EVENT DATE: 201410
